FAERS Safety Report 17893793 (Version 1)
Quarter: 2020Q2

REPORT INFORMATION
  Report Type: Spontaneous
  Country: US (occurrence: US)
  Receive Date: 20200615
  Receipt Date: 20200615
  Transmission Date: 20200714
  Serious: No
  Sender: FDA-Public Use
  Company Number: US-BIOGEN-2020BI00885131

PATIENT
  Sex: Male
  Weight: 76.27 kg

DRUGS (6)
  1. BACLOFEN. [Concomitant]
     Active Substance: BACLOFEN
     Route: 065
  2. ACETAMINOPHEN. [Concomitant]
     Active Substance: ACETAMINOPHEN
     Route: 065
  3. FLUZONE [Concomitant]
     Active Substance: INFLUENZA A VIRUS A/CALIFORNIA/7/2009 X-179A (H1N1) ANTIGEN (FORMALDEHYDE INACTIVATED)\INFLUENZA A VIRUS A/VICTORIA/210/2009 X-187 (H3N2) ANTIGEN (FORMALDEHYDE INACTIVATED)\INFLUENZA B VIRUS B/BRISBANE/60/2008 ANTIGEN (FORMALDEHYDE INACTIVATED)
     Route: 065
  4. REBIF [Concomitant]
     Active Substance: INTERFERON BETA-1A
     Route: 065
  5. TECFIDERA [Suspect]
     Active Substance: DIMETHYL FUMARATE
     Indication: MULTIPLE SCLEROSIS
     Route: 048
  6. IBUPROFEN. [Concomitant]
     Active Substance: IBUPROFEN
     Route: 065

REACTIONS (2)
  - Product dose omission [Unknown]
  - Feeling hot [Unknown]
